FAERS Safety Report 14320120 (Version 1)
Quarter: 2017Q4

REPORT INFORMATION
  Report Type: Spontaneous
  Country: US (occurrence: US)
  Receive Date: 20171221
  Receipt Date: 20171221
  Transmission Date: 20180321
  Serious: Yes (Hospitalization)
  Sender: FDA-Public Use
  Company Number: None

PATIENT
  Age: 69 Year
  Sex: Male
  Weight: 104.8 kg

DRUGS (1)
  1. NAPROXEN. [Suspect]
     Active Substance: NAPROXEN
     Indication: PAIN
     Dates: start: 20170814, end: 20171110

REACTIONS (5)
  - Gastric haemorrhage [None]
  - Gastritis [None]
  - Melaena [None]
  - Peptic ulcer [None]
  - Anaemia [None]

NARRATIVE: CASE EVENT DATE: 20171110
